FAERS Safety Report 19731321 (Version 2)
Quarter: 2021Q3

REPORT INFORMATION
  Report Type: Spontaneous
  Country: US (occurrence: US)
  Receive Date: 20210820
  Receipt Date: 20210820
  Transmission Date: 20211014
  Serious: No
  Sender: FDA-Public Use
  Company Number: US-JAZZ-2020-US-017289

PATIENT
  Age: 66 Year
  Sex: Male

DRUGS (2)
  1. VYXEOS [Suspect]
     Active Substance: CYTARABINE\DAUNORUBICIN
     Dosage: REDUCED DOSE DAUNORUBICIN  29 MG/M2 LIPOSOMAL CYTARABINE 65 MG/M2 ON DAY 1 AND 3
     Route: 065
  2. VYXEOS [Suspect]
     Active Substance: CYTARABINE\DAUNORUBICIN
     Indication: ACUTE MYELOID LEUKAEMIA
     Dosage: LIPOSOMAL DAUNORUBICIN 44 MG/M2?CYTARABINE 100 MG/M2 ON DAY 1,3 AND 5/ 90 MINUTE INFUSION
     Route: 065

REACTIONS (1)
  - Skin discolouration [Recovered/Resolved]
